FAERS Safety Report 15081412 (Version 5)
Quarter: 2018Q4

REPORT INFORMATION
  Report Type: Spontaneous
  Country: JP (occurrence: JP)
  Receive Date: 20180628
  Receipt Date: 20181005
  Transmission Date: 20190204
  Serious: Yes (Hospitalization, Other)
  Sender: FDA-Public Use
  Company Number: JP-AMGEN-JPNSP2018068262

PATIENT
  Age: 7 Decade
  Sex: Male
  Weight: 50 kg

DRUGS (44)
  1. DEXAMETHASONE SODIUM PHOSPHATE. [Concomitant]
     Active Substance: DEXAMETHASONE SODIUM PHOSPHATE
     Dosage: 6.6 MG, UNK
     Route: 050
     Dates: start: 20180228, end: 20180228
  2. EDOXABAN TOSILATE [Concomitant]
     Active Substance: EDOXABAN TOSYLATE
     Dosage: 30 MG, UNK
     Route: 048
     Dates: end: 20180606
  3. TEPRENONE [Concomitant]
     Active Substance: TEPRENONE
     Dosage: 0.5 G, TID
     Route: 048
     Dates: start: 20180608
  4. CALCIUM CHLORIDE DIHYDRATE W/POTASSIUM ACETAT [Concomitant]
     Dosage: 1000 ML, UNK
     Route: 050
     Dates: end: 20180601
  5. HEPARIN SODIUM. [Concomitant]
     Active Substance: HEPARIN SODIUM
     Dosage: 1000 IU, UNK
     Route: 050
     Dates: start: 20180605, end: 20180611
  6. KETOPROFEN. [Concomitant]
     Active Substance: KETOPROFEN
     Dosage: 50 MG, UNK
     Route: 030
     Dates: start: 20180605, end: 20180605
  7. SODIUM GUALENATE [Concomitant]
     Active Substance: SODIUM GUALENATE
     Dosage: 5 ML, UNK
     Route: 049
     Dates: start: 20180608, end: 20180608
  8. PANITUMUMAB [Suspect]
     Active Substance: PANITUMUMAB
     Dosage: 330 MG, QD
     Route: 041
     Dates: start: 20180521, end: 20180521
  9. DEXAMETHASONE SODIUM PHOSPHATE. [Concomitant]
     Active Substance: DEXAMETHASONE SODIUM PHOSPHATE
     Dosage: 6.6 MG, UNK
     Route: 050
     Dates: start: 20180129, end: 20180129
  10. DEXAMETHASONE SODIUM PHOSPHATE. [Concomitant]
     Active Substance: DEXAMETHASONE SODIUM PHOSPHATE
     Dosage: 6.6 MG, UNK
     Route: 050
     Dates: start: 20180521, end: 20180521
  11. SODIUM GUALENATE [Concomitant]
     Active Substance: SODIUM GUALENATE
     Dosage: 5 ML, UNK
     Route: 049
     Dates: start: 20180604, end: 20180604
  12. FLUOROURACIL. [Suspect]
     Active Substance: FLUOROURACIL
     Indication: COLON CANCER
     Dosage: 430 MG, UNK
     Route: 040
     Dates: start: 20180129, end: 20180129
  13. CALCIUM LEVOFOLINATE [Suspect]
     Active Substance: LEVOLEUCOVORIN CALCIUM
     Dosage: 300 MG, UNK
     Route: 041
     Dates: start: 20180228, end: 20180228
  14. FENOFIBRATE. [Concomitant]
     Active Substance: FENOFIBRATE
     Dosage: 160 MG, QD
     Route: 048
     Dates: start: 20180608
  15. FAMOTIDINE. [Concomitant]
     Active Substance: FAMOTIDINE
     Dosage: 10 MG, BID
     Route: 048
     Dates: end: 20180606
  16. CEFOPERAZONE SODIUM AND SULBACTAM [Concomitant]
     Dosage: 1 G, UNK
     Route: 050
     Dates: start: 20180601, end: 20180601
  17. FLUOROURACIL. [Suspect]
     Active Substance: FLUOROURACIL
     Dosage: 2000 MG, UNK
     Route: 041
     Dates: start: 20180129, end: 20180131
  18. FLUOROURACIL. [Suspect]
     Active Substance: FLUOROURACIL
     Dosage: 500 MG, UNK
     Route: 040
     Dates: start: 20180228, end: 20180228
  19. FLUOROURACIL. [Suspect]
     Active Substance: FLUOROURACIL
     Dosage: 3000 MG, UNK
     Route: 041
     Dates: start: 20180228, end: 20180302
  20. FLUOROURACIL. [Suspect]
     Active Substance: FLUOROURACIL
     Dosage: 3600 MG, UNK
     Route: 041
     Dates: start: 20180521, end: 20180523
  21. EDOXABAN TOSILATE [Concomitant]
     Active Substance: EDOXABAN TOSYLATE
     Dosage: 30 MG, UNK
     Route: 048
     Dates: start: 20180608
  22. OXALIPLATIN. [Suspect]
     Active Substance: OXALIPLATIN
     Indication: COLON CANCER
     Dosage: 90 MG, UNK
     Route: 041
     Dates: start: 20180129, end: 20180129
  23. METOCLOPRAMIDE HYDROCHLORIDE. [Concomitant]
     Active Substance: METOCLOPRAMIDE HYDROCHLORIDE
     Dosage: 10 MG, UNK
     Route: 050
     Dates: start: 20180129, end: 20180129
  24. MAGNESIUM OXIDE. [Concomitant]
     Active Substance: MAGNESIUM OXIDE
     Dosage: 330 MG, TID
     Route: 048
     Dates: end: 20180606
  25. MAGNESIUM OXIDE. [Concomitant]
     Active Substance: MAGNESIUM OXIDE
     Dosage: 330 MG, TID
     Route: 048
     Dates: start: 20180608
  26. CALCIUM CHLORIDE DIHYDRATE W/POTASSIUM ACETAT [Concomitant]
     Dosage: 500 ML, UNK
     Route: 050
     Dates: start: 20180605, end: 20180611
  27. HEPARIN SODIUM. [Concomitant]
     Active Substance: HEPARIN SODIUM
     Dosage: 1000 IU, UNK
     Route: 050
     Dates: end: 20180531
  28. CEFOPERAZONE SODIUM AND SULBACTAM [Concomitant]
     Dosage: 2 G, UNK
     Route: 050
     Dates: start: 20180602, end: 20180603
  29. TRIAMCINOLONE ACETONIDE. [Concomitant]
     Active Substance: TRIAMCINOLONE ACETONIDE
     Dosage: UNK
     Route: 050
     Dates: start: 20180604, end: 20180604
  30. OXALIPLATIN. [Suspect]
     Active Substance: OXALIPLATIN
     Dosage: 110 MG, UNK
     Route: 041
     Dates: start: 20180228, end: 20180228
  31. CALCIUM LEVOFOLINATE [Suspect]
     Active Substance: LEVOLEUCOVORIN CALCIUM
     Indication: COLON CANCER
     Dosage: 300 MG, UNK
     Route: 041
     Dates: start: 20180129, end: 20180129
  32. CALCIUM LEVOFOLINATE [Suspect]
     Active Substance: LEVOLEUCOVORIN CALCIUM
     Dosage: 300 MG, UNK
     Route: 041
     Dates: start: 20180521, end: 20180521
  33. METOCLOPRAMIDE HYDROCHLORIDE. [Concomitant]
     Active Substance: METOCLOPRAMIDE HYDROCHLORIDE
     Dosage: 10 MG, UNK
     Route: 050
     Dates: start: 20180521, end: 20180521
  34. TEPRENONE [Concomitant]
     Active Substance: TEPRENONE
     Dosage: 0.5 G, TID
     Route: 048
     Dates: end: 20180606
  35. KETOPROFEN. [Concomitant]
     Active Substance: KETOPROFEN
     Dosage: 50 MG, UNK
     Route: 030
     Dates: start: 20180601, end: 20180602
  36. KETOPROFEN. [Concomitant]
     Active Substance: KETOPROFEN
     Dosage: 25 MG, UNK
     Route: 030
     Dates: start: 20180606, end: 20180606
  37. HEPARINOID [Concomitant]
     Active Substance: CHONDROITIN SULFATE (BOVINE)
     Dosage: UNK
     Route: 062
     Dates: start: 20180608, end: 20180608
  38. PANITUMUMAB [Suspect]
     Active Substance: PANITUMUMAB
     Indication: COLON CANCER
     Dosage: 330 MG, QD
     Route: 041
     Dates: start: 20180129, end: 20180129
  39. PANITUMUMAB [Suspect]
     Active Substance: PANITUMUMAB
     Dosage: 330 MG, QD
     Route: 041
     Dates: start: 20180228, end: 20180228
  40. OXALIPLATIN. [Suspect]
     Active Substance: OXALIPLATIN
     Dosage: 128 MG, UNK
     Route: 041
     Dates: start: 20180521, end: 20180521
  41. FLUOROURACIL. [Suspect]
     Active Substance: FLUOROURACIL
     Dosage: 600 MG, UNK
     Route: 040
     Dates: start: 20180521, end: 20180521
  42. METOCLOPRAMIDE HYDROCHLORIDE. [Concomitant]
     Active Substance: METOCLOPRAMIDE HYDROCHLORIDE
     Dosage: 10 MG, UNK
     Route: 050
     Dates: start: 20180228, end: 20180228
  43. FENOFIBRATE. [Concomitant]
     Active Substance: FENOFIBRATE
     Dosage: 160 MG, QD
     Route: 048
     Dates: end: 20180606
  44. FAMOTIDINE. [Concomitant]
     Active Substance: FAMOTIDINE
     Dosage: 10 MG, BID
     Route: 048
     Dates: start: 20180608

REACTIONS (4)
  - Dermatitis [Recovering/Resolving]
  - Neuropathy peripheral [Unknown]
  - Diarrhoea [Recovered/Resolved]
  - Pyrexia [Recovering/Resolving]

NARRATIVE: CASE EVENT DATE: 2018
